FAERS Safety Report 12351628 (Version 3)
Quarter: 2017Q2

REPORT INFORMATION
  Report Type: Spontaneous
  Country: CA (occurrence: CA)
  Receive Date: 20160510
  Receipt Date: 20170505
  Transmission Date: 20170830
  Serious: Yes (Death, Hospitalization, Disabling, Other)
  Sender: FDA-Public Use
  Company Number: CA-009507513-1603CAN002558

PATIENT
  Age: 62 Year
  Sex: Male
  Weight: 92 kg

DRUGS (21)
  1. DOXYCYCLINE. [Suspect]
     Active Substance: DOXYCYCLINE
     Indication: OSTEOMYELITIS
     Dosage: UNK
     Route: 065
  2. TIGECYCLINE. [Suspect]
     Active Substance: TIGECYCLINE
     Indication: INTERVERTEBRAL DISCITIS
     Dosage: UNK
     Route: 065
  3. RIFAMPIN. [Suspect]
     Active Substance: RIFAMPIN
     Indication: INTERVERTEBRAL DISCITIS
  4. VANCOMYCIN [Suspect]
     Active Substance: VANCOMYCIN
     Indication: PARASPINAL ABSCESS
     Dosage: TARGET TROUGH 15-20 MG/L
     Route: 042
     Dates: start: 201511, end: 201601
  5. CEFTAROLINE FOSAMIL ACETATE [Suspect]
     Active Substance: CEFTAROLINE FOSAMIL
     Indication: PARASPINAL ABSCESS
     Dosage: 300 MG, 1 EVERY 12 HOURS
     Route: 042
     Dates: start: 20160322, end: 20160401
  6. RIFAMPIN. [Suspect]
     Active Substance: RIFAMPIN
     Indication: OSTEOMYELITIS
     Dosage: UNK
     Route: 065
  7. CUBICIN [Suspect]
     Active Substance: DAPTOMYCIN
     Indication: OSTEOMYELITIS
     Dosage: 700 MG, 1 EVERY DAY (APPROX 8MG/KG)
     Route: 042
     Dates: start: 20160122, end: 20160226
  8. DOXYCYCLINE. [Suspect]
     Active Substance: DOXYCYCLINE
     Indication: PARASPINAL ABSCESS
     Dosage: 100 MG, 2 EVERY DAY
     Route: 048
     Dates: start: 20160229, end: 20160314
  9. CEFTAROLINE FOSAMIL ACETATE [Suspect]
     Active Substance: CEFTAROLINE FOSAMIL
     Indication: OSTEOMYELITIS
     Dosage: UNK
     Route: 065
  10. CEFTAROLINE FOSAMIL ACETATE [Suspect]
     Active Substance: CEFTAROLINE FOSAMIL
     Indication: INTERVERTEBRAL DISCITIS
  11. TIGECYCLINE. [Suspect]
     Active Substance: TIGECYCLINE
     Indication: PARASPINAL ABSCESS
     Dosage: 100 MG, ONCE
     Route: 042
     Dates: start: 20160314, end: 20160314
  12. VANCOMYCIN [Suspect]
     Active Substance: VANCOMYCIN
     Indication: OSTEOMYELITIS
     Dosage: UNK
     Route: 065
  13. CUBICIN [Suspect]
     Active Substance: DAPTOMYCIN
     Indication: INTERVERTEBRAL DISCITIS
     Dosage: UNK
     Route: 065
  14. VANCOMYCIN [Suspect]
     Active Substance: VANCOMYCIN
     Indication: INTERVERTEBRAL DISCITIS
  15. DOXYCYCLINE. [Suspect]
     Active Substance: DOXYCYCLINE
     Indication: INTERVERTEBRAL DISCITIS
  16. LINEZOLID. [Suspect]
     Active Substance: LINEZOLID
     Indication: PARASPINAL ABSCESS
     Dosage: 600 MG, 2 EVERY DAY
     Route: 048
     Dates: start: 20160226, end: 20160314
  17. LINEZOLID. [Suspect]
     Active Substance: LINEZOLID
     Indication: OSTEOMYELITIS
     Dosage: UNK
     Route: 065
  18. LINEZOLID. [Suspect]
     Active Substance: LINEZOLID
     Indication: INTERVERTEBRAL DISCITIS
  19. CUBICIN [Suspect]
     Active Substance: DAPTOMYCIN
     Indication: PARASPINAL ABSCESS
     Dosage: 900 MG, 1 EVERY DAY (APPROX 10MG/KG)
     Route: 042
     Dates: start: 20160120, end: 20160121
  20. RIFAMPIN. [Suspect]
     Active Substance: RIFAMPIN
     Indication: PARASPINAL ABSCESS
     Dosage: 300 MG, 2 EVERY DAY
     Route: 048
     Dates: start: 20160314, end: 20160322
  21. TIGECYCLINE. [Suspect]
     Active Substance: TIGECYCLINE
     Indication: OSTEOMYELITIS
     Dosage: 50 MG, BID
     Route: 042
     Dates: start: 201603, end: 20160322

REACTIONS (7)
  - Treatment failure [Not Recovered/Not Resolved]
  - General physical health deterioration [Fatal]
  - Hypophagia [Unknown]
  - Treatment failure [Not Recovered/Not Resolved]
  - Staphylococcal infection [Fatal]
  - Thrombocytopenia [Unknown]
  - Transaminases increased [Unknown]

NARRATIVE: CASE EVENT DATE: 2016
